FAERS Safety Report 10313896 (Version 7)
Quarter: 2015Q3

REPORT INFORMATION
  Report Type: Report from Study
  Country: US (occurrence: US)
  Receive Date: 20140718
  Receipt Date: 20150813
  Transmission Date: 20151125
  Serious: Yes (Other)
  Sender: FDA-Public Use
  Company Number: US-SA-2014SA094449

PATIENT
  Age: 64 Year
  Sex: Female

DRUGS (4)
  1. AUBAGIO [Suspect]
     Active Substance: TERIFLUNOMIDE
     Indication: MULTIPLE SCLEROSIS
     Route: 048
     Dates: start: 20140616, end: 20140728
  2. TOPROL XL [Concomitant]
     Active Substance: METOPROLOL SUCCINATE
  3. AUBAGIO [Suspect]
     Active Substance: TERIFLUNOMIDE
     Indication: MULTIPLE SCLEROSIS
     Route: 048
  4. AUBAGIO [Suspect]
     Active Substance: TERIFLUNOMIDE
     Indication: MULTIPLE SCLEROSIS
     Route: 048

REACTIONS (11)
  - Heart rate increased [Recovering/Resolving]
  - Headache [Unknown]
  - Epistaxis [Recovered/Resolved]
  - Pain in extremity [Unknown]
  - Blood pressure increased [Recovered/Resolved]
  - Burning sensation [Unknown]
  - Hypoaesthesia [Unknown]
  - Progressive multiple sclerosis [Unknown]
  - Vitamin D decreased [Not Recovered/Not Resolved]
  - Drug dose omission [Unknown]
  - Arthritis [Unknown]

NARRATIVE: CASE EVENT DATE: 20140708
